FAERS Safety Report 8557477-X (Version None)
Quarter: 2012Q3

REPORT INFORMATION
  Report Type: 
  Country: None (occurrence: None)
  Receive Date: 20120725
  Receipt Date: 20120725
  Transmission Date: 20120928
  Serious: Yes (Other)
  Sender: FDA-Public Use
  Company Number: None

PATIENT
  Sex: Female

DRUGS (1)
  1. SILVER SULFADIAZINE [Suspect]
     Indication: THERMAL BURN
     Dosage: APPLY AS DIRECTED FOR DRESSING  CHANGES DAILY TOP
     Route: 061
     Dates: start: 20120615, end: 20120723

REACTIONS (4)
  - PRODUCT QUALITY ISSUE [None]
  - PRODUCT SUBSTITUTION ISSUE [None]
  - APPLICATION SITE PAIN [None]
  - APPLICATION SITE EROSION [None]
